FAERS Safety Report 9105999 (Version 7)
Quarter: 2015Q2

REPORT INFORMATION
  Report Type: Report from Study
  Country: US (occurrence: US)
  Receive Date: 20130221
  Receipt Date: 20150428
  Transmission Date: 20150821
  Serious: Yes (Hospitalization)
  Sender: FDA-Public Use
  Company Number: US-MERCK-1204USA01758

PATIENT
  Age: 55 Year
  Sex: Male
  Weight: 83.22 kg

DRUGS (16)
  1. REBETOL [Suspect]
     Active Substance: RIBAVIRIN
     Dosage: 3 CAPSULES, QPM
     Route: 048
     Dates: start: 20111229, end: 20120223
  2. MK-5172 [Suspect]
     Active Substance: GRAZOPREVIR ANHYDROUS
     Indication: CHRONIC HEPATITIS C
     Dosage: 400 MG, QD
     Route: 048
     Dates: start: 20111228, end: 20120224
  3. MK-5172 [Suspect]
     Active Substance: GRAZOPREVIR ANHYDROUS
     Dosage: 400 MG, QD
     Route: 048
     Dates: start: 20120305, end: 20120305
  4. MK-5172 [Suspect]
     Active Substance: GRAZOPREVIR ANHYDROUS
     Dosage: 400 MG, QD
     Route: 048
     Dates: start: 20120309, end: 20120321
  5. PEGINTRON [Suspect]
     Active Substance: PEGINTERFERON ALFA-2B
     Dosage: 150 MICROGRAMS/0.5 ML, 0.3 ML, QW
     Route: 058
     Dates: start: 20120321, end: 20120411
  6. REBETOL [Suspect]
     Active Substance: RIBAVIRIN
     Dosage: 2 CAPSULES, QAM
     Route: 048
     Dates: start: 20120320, end: 20120320
  7. REBETOL [Suspect]
     Active Substance: RIBAVIRIN
     Dosage: 3 CAPSULES, QAM
     Route: 048
     Dates: start: 20120305, end: 20120305
  8. REBETOL [Suspect]
     Active Substance: RIBAVIRIN
     Dosage: 1 CAPSULE, QAM
     Route: 048
     Dates: start: 20120309, end: 20120319
  9. REBETOL [Suspect]
     Active Substance: RIBAVIRIN
     Dosage: 2 CAPSULES, QAM
     Route: 048
     Dates: start: 20120321, end: 20120404
  10. SYNTHROID [Concomitant]
     Active Substance: LEVOTHYROXINE SODIUM
     Indication: HYPOTHYROIDISM
     Dosage: 75 MICROGRAM, QD
     Route: 048
     Dates: start: 20110726
  11. REBETOL [Suspect]
     Active Substance: RIBAVIRIN
     Indication: CHRONIC HEPATITIS C
     Dosage: 3 CAPSULES, FIRST DOSE
     Route: 048
     Dates: start: 20111228, end: 20111228
  12. REBETOL [Suspect]
     Active Substance: RIBAVIRIN
     Dosage: 1 CAPSULE, QPM
     Route: 048
     Dates: start: 20120307, end: 20120403
  13. REBETOL [Suspect]
     Active Substance: RIBAVIRIN
     Dosage: 3 CAPSULES, QAM
     Route: 048
     Dates: start: 20111229, end: 20120224
  14. CENTRUM (MINERALS (UNSPECIFIED) (+) VITAMINS (UNSPECIFIED)) [Concomitant]
     Indication: ROUTINE HEALTH MAINTENANCE
     Dosage: 1 TABLET, QD
     Route: 048
     Dates: start: 200906
  15. PEGINTRON [Suspect]
     Active Substance: PEGINTERFERON ALFA-2B
     Indication: CHRONIC HEPATITIS C
     Dosage: 150 MICROGRAMS/0.5 ML,0.5 ML, QW
     Route: 058
     Dates: start: 20111228, end: 20120222
  16. PEGINTRON [Suspect]
     Active Substance: PEGINTERFERON ALFA-2B
     Dosage: 150 MICROGRAMS/0.5 ML, 0.3 ML, QW
     Route: 058
     Dates: start: 20120307, end: 20120314

REACTIONS (1)
  - Deep vein thrombosis [Recovered/Resolved]

NARRATIVE: CASE EVENT DATE: 20120404
